FAERS Safety Report 4883715-0 (Version None)
Quarter: 2006Q1

REPORT INFORMATION
  Report Type: 
  Country: None (occurrence: None)
  Receive Date: 20060113
  Receipt Date: 20051206
  Transmission Date: 20060701
  Serious: Yes (Death)
  Sender: FDA-Public Use
  Company Number: US200512000825

PATIENT
  Age: 84 Year
  Sex: Female

DRUGS (3)
  1. XIGRIS [Suspect]
     Indication: SEPSIS
     Dosage: INTRAVENOUS
     Route: 042
     Dates: end: 20051205
  2. VASOPRESSIN INJECTION (VASOPRESSIN INJECTION) [Concomitant]
  3. AMIODARONE HCL [Concomitant]

REACTIONS (1)
  - THERAPY NON-RESPONDER [None]
